FAERS Safety Report 23952148 (Version 1)
Quarter: 2024Q2

REPORT INFORMATION
  Report Type: Spontaneous
  Country: GB (occurrence: GB)
  Receive Date: 20240607
  Receipt Date: 20240607
  Transmission Date: 20240716
  Serious: Yes (Hospitalization)
  Sender: FDA-Public Use
  Company Number: GB-MHRA-TPP5676785C581080YC1716547198384

PATIENT
  Age: 51 Year
  Sex: Male
  Weight: 124 kg

DRUGS (11)
  1. NAPROXEN [Suspect]
     Active Substance: NAPROXEN
     Route: 065
  2. ATORVASTATIN [Concomitant]
     Active Substance: ATORVASTATIN
     Indication: Blood cholesterol increased
     Dosage: TPP YC - PLEASE RECLASSIFY,
     Dates: start: 20240209
  3. TRAMADOL [Concomitant]
     Active Substance: TRAMADOL\TRAMADOL HYDROCHLORIDE
     Dosage: TPP YC - PLEASE RECLASSIFY, TAKE 1 OR 2 EVERY 4-6 HRS,
     Dates: start: 20240515, end: 20240522
  4. HYDROXOCOBALAMIN [Concomitant]
     Active Substance: HYDROXOCOBALAMIN
     Dosage: AS DIRECTED 8 WEEKLY, TPP YC - PLEASE RECLASSIFY
     Route: 030
     Dates: start: 20240131
  5. THIAMINE [Concomitant]
     Active Substance: THIAMINE
     Dosage: TPP YC - PLEASE RECLASSIFY
     Dates: start: 20240131
  6. CODEINE PHOSPHATE [Concomitant]
     Active Substance: CODEINE PHOSPHATE
     Dosage: TIME INTERVAL: 0.33333333 DAYS: WHEN REQUIRED, TPP YC - PLEASE RECLASSIFY,
     Dates: start: 20240131, end: 20240524
  7. RAMIPRIL [Concomitant]
     Active Substance: RAMIPRIL
     Indication: Hypertension
     Dosage: TPP YC - PLEASE RECLASSIFY
     Dates: start: 20240131
  8. GABAPENTIN [Concomitant]
     Active Substance: GABAPENTIN
     Dosage: TIME INTERVAL: 0.33333333 DAYS: TPP YC - PLEASE RECLASSIFY,
     Dates: start: 20240131
  9. INDAPAMIDE [Concomitant]
     Active Substance: INDAPAMIDE
     Indication: Hypertension
     Dosage: EACH MORNING, TPP YC - PLEASE RECLASSIFY,
     Dates: start: 20240209
  10. VOLTAROL [Concomitant]
     Active Substance: DICLOFENAC SODIUM
     Dosage: APPLY TWICE DAILY, TPP YC - PLEASE RECLASSIFY
     Dates: start: 20240131
  11. SILDENAFIL [Concomitant]
     Active Substance: SILDENAFIL
     Dosage: TAKE AS DIRECTED APPROX ONE HOUR BEFORE SEXUAL ..., TPP YC - PLEASE RECLASSIFY
     Dates: start: 20240131

REACTIONS (1)
  - Peripheral swelling [Recovered/Resolved]
